FAERS Safety Report 7815040-X (Version None)
Quarter: 2011Q4

REPORT INFORMATION
  Report Type: 
  Country: None (occurrence: None)
  Receive Date: 20111014
  Receipt Date: 20111003
  Transmission Date: 20120403
  Serious: Yes (Other)
  Sender: FDA-Public Use
  Company Number: CA-JNJFOC-20110907504

PATIENT
  Sex: Female
  Weight: 62 kg

DRUGS (4)
  1. IMURAN [Concomitant]
     Route: 065
  2. PREDNISONE [Concomitant]
     Route: 065
  3. REMICADE [Suspect]
     Route: 042
     Dates: start: 20110906
  4. REMICADE [Suspect]
     Indication: COLITIS ULCERATIVE
     Route: 042
     Dates: start: 20110726

REACTIONS (2)
  - LOSS OF CONSCIOUSNESS [None]
  - PRESYNCOPE [None]
